FAERS Safety Report 6310863-0 (Version None)
Quarter: 2009Q3

REPORT INFORMATION
  Report Type: 
  Country: None (occurrence: None)
  Receive Date: 20090805
  Receipt Date: 20090723
  Transmission Date: 20100115
  Serious: No
  Sender: FDA-Public Use
  Company Number: US-144829

PATIENT
  Sex: Female

DRUGS (5)
  1. WINRHO SDF LIQUID [Suspect]
     Indication: IDIOPATHIC THROMBOCYTOPENIC PURPURA
     Dosage: 5000 UG QD  INTRAVENOUS, INTRAVENOUS
     Route: 042
     Dates: start: 20090609, end: 20090609
  2. WINRHO SDF LIQUID [Suspect]
  3. INDERAL [Concomitant]
  4. BENADRYL [Concomitant]
  5. AMERGE [Concomitant]

REACTIONS (6)
  - CHILLS [None]
  - CHROMATURIA [None]
  - FATIGUE [None]
  - HAEMOGLOBIN DECREASED [None]
  - HEPATIC ENZYME INCREASED [None]
  - HYPERBILIRUBINAEMIA [None]
